FAERS Safety Report 8592322-8 (Version None)
Quarter: 2012Q3

REPORT INFORMATION
  Report Type: 
  Country: None (occurrence: None)
  Receive Date: 20120814
  Receipt Date: 20120807
  Transmission Date: 20120928
  Serious: Yes (Life-Threatening, Hospitalization)
  Sender: FDA-Public Use
  Company Number: CA-JNJFOC-20120804257

PATIENT
  Sex: Male
  Weight: 98 kg

DRUGS (13)
  1. CALCIUM [Concomitant]
     Route: 065
  2. TYLENOL [Concomitant]
     Route: 065
  3. REMICADE [Suspect]
     Indication: CROHN'S DISEASE
     Route: 042
     Dates: start: 20080807
  4. ESCITALOPRAM [Concomitant]
     Route: 048
  5. URSODIOL [Concomitant]
     Route: 048
  6. CODEINE SULFATE [Concomitant]
     Route: 065
  7. PREDNISONE TAB [Concomitant]
     Route: 048
  8. VITAMIN D [Concomitant]
     Route: 065
  9. PANTOPRAZOLE SODIUM [Concomitant]
     Route: 048
  10. ACTONEL [Concomitant]
     Route: 048
  11. TRAZODONE HYDROCHLORIDE [Concomitant]
     Route: 048
  12. HYDROXYZINE [Concomitant]
     Route: 048
  13. ASACOL [Concomitant]
     Route: 048

REACTIONS (3)
  - SEPTIC SHOCK [None]
  - CHOLELITHIASIS [None]
  - CHOLECYSTITIS [None]
